FAERS Safety Report 25955692 (Version 3)
Quarter: 2025Q4

REPORT INFORMATION
  Report Type: Spontaneous
  Country: EU (occurrence: EU)
  Receive Date: 20251024
  Receipt Date: 20251205
  Transmission Date: 20260117
  Serious: Yes (Other)
  Sender: CELLTRION
  Company Number: None

PATIENT

DRUGS (7)
  1. INFLIXIMAB [Suspect]
     Active Substance: INFLIXIMAB
     Indication: Crohn^s disease
     Dosage: UNK
     Route: 042
     Dates: start: 20250918, end: 20251002
  2. INFLIXIMAB [Suspect]
     Active Substance: INFLIXIMAB
     Dosage: UNK
     Dates: start: 20250925
  3. INFLIXIMAB [Suspect]
     Active Substance: INFLIXIMAB
     Dosage: UNK
     Dates: start: 20250925
  4. MESSALAZINA [Concomitant]
  5. CIANOCOBALAMINA [Concomitant]
  6. FOLIC ACID [Concomitant]
     Active Substance: FOLIC ACID
  7. HYDROCORTISONE [Concomitant]
     Active Substance: HYDROCORTISONE

REACTIONS (4)
  - Anaphylactic reaction [Recovered/Resolved]
  - Syncope [Unknown]
  - Drug specific antibody present [Recovered/Resolved]
  - Malaise [Unknown]

NARRATIVE: CASE EVENT DATE: 20250925
